FAERS Safety Report 18742606 (Version 1)
Quarter: 2021Q1

REPORT INFORMATION
  Report Type: Spontaneous
  Country: US (occurrence: US)
  Receive Date: 20210114
  Receipt Date: 20210114
  Transmission Date: 20210419
  Serious: Yes (Other)
  Sender: FDA-Public Use
  Company Number: US-PFIZER INC-2021021079

PATIENT
  Age: 57 Year
  Sex: Male
  Weight: 77.56 kg

DRUGS (1)
  1. XANAX [Suspect]
     Active Substance: ALPRAZOLAM
     Indication: ANXIETY
     Dosage: UNK
     Route: 048
     Dates: start: 200710, end: 200805

REACTIONS (6)
  - Anxiety [Unknown]
  - Drug dependence [Unknown]
  - Rebound effect [Unknown]
  - Withdrawal syndrome [Unknown]
  - Somnolence [Unknown]
  - Panic attack [Unknown]

NARRATIVE: CASE EVENT DATE: 2008
